FAERS Safety Report 7912538-0 (Version None)
Quarter: 2011Q4

REPORT INFORMATION
  Report Type: 
  Country: None (occurrence: None)
  Receive Date: 20111114
  Receipt Date: 20111109
  Transmission Date: 20120403
  Serious: Yes (Other)
  Sender: FDA-Public Use
  Company Number: US-PFIZER INC-2011274670

PATIENT
  Sex: Female

DRUGS (3)
  1. PREMARIN [Suspect]
     Indication: OFF LABEL USE
     Dosage: UNK
  2. PREMARIN [Suspect]
     Indication: BLADDER DISORDER
  3. PREMARIN [Suspect]
     Indication: URINARY TRACT INFECTION

REACTIONS (3)
  - CONFUSIONAL STATE [None]
  - DEMENTIA [None]
  - MEMORY IMPAIRMENT [None]
